FAERS Safety Report 12152986 (Version 1)
Quarter: 2016Q1

REPORT INFORMATION
  Report Type: Spontaneous
  Country: HU (occurrence: HU)
  Receive Date: 20160305
  Receipt Date: 20160305
  Transmission Date: 20160526
  Serious: Yes (Other)
  Sender: FDA-Public Use
  Company Number: HU-AMGEN-HUNSP2015090799

PATIENT
  Age: 68 Year
  Sex: Female
  Weight: 70 kg

DRUGS (8)
  1. ENBREL [Suspect]
     Active Substance: ETANERCEPT
     Indication: RHEUMATOID ARTHRITIS
     Dosage: 50 MG, 1X/WEEK
     Route: 065
     Dates: start: 2006
  2. COVEREX AS KOMB [Concomitant]
     Indication: HYPERTENSION
     Dosage: 5 MG, IN THE DAILY MORNING
     Dates: start: 2006
  3. COLECALCIFEROL [Concomitant]
     Active Substance: CHOLECALCIFEROL
     Indication: OSTEOPOROSIS
     Dosage: 3000 IU, MONDAY,WEDNESDAY, FRIDAY 1X1
     Dates: start: 2010
  4. IBANDRONSAV TEVA [Concomitant]
     Indication: OSTEOPOROSIS
     Dosage: 3MG/3ML, ONCE IN EVERY 3 MONTHS
     Dates: start: 2010
  5. MEDROL [Suspect]
     Active Substance: METHYLPREDNISOLONE
     Indication: PRODUCT USED FOR UNKNOWN INDICATION
     Dosage: UNK
     Route: 065
     Dates: end: 2013
  6. AMLODIPINE [Concomitant]
     Active Substance: AMLODIPINE BESYLATE
     Indication: HYPERTENSION
     Dosage: 5 MG, 1X/DAY IN THE EVENING
     Dates: start: 2006
  7. APO-FAMOTIDIN [Concomitant]
     Indication: PROPHYLAXIS
     Dosage: 40 MG, 2X0.5, DAILY
     Dates: start: 2006
  8. CITROKALCIUM [Concomitant]
     Indication: OSTEOPOROSIS
     Dosage: 200 MG, 1 IN THE EVENING
     Dates: start: 2010

REACTIONS (2)
  - Pain in extremity [Not Recovered/Not Resolved]
  - Musculoskeletal pain [Recovering/Resolving]

NARRATIVE: CASE EVENT DATE: 2014
